FAERS Safety Report 6144786-7 (Version None)
Quarter: 2009Q2

REPORT INFORMATION
  Report Type: 
  Country: None (occurrence: None)
  Receive Date: 20090406
  Receipt Date: 20090304
  Transmission Date: 20091009
  Serious: No
  Sender: FDA-Public Use
  Company Number: US-BAYER-200916483NA

PATIENT
  Age: 51 Year
  Sex: Female

DRUGS (1)
  1. EOVIST [Suspect]
     Indication: COMPUTERISED TOMOGRAM ABDOMEN
     Dosage: TOTAL DAILY DOSE: 7 ML
     Route: 042
     Dates: start: 20090218, end: 20090218

REACTIONS (1)
  - URTICARIA [None]
